FAERS Safety Report 9251177 (Version 1)
Quarter: 2013Q1

REPORT INFORMATION
  Report Type: Spontaneous
  Country: US (occurrence: None)
  Receive Date: 20130305
  Receipt Date: 20130305
  Transmission Date: 20140127
  Serious: Yes (Other)
  Sender: FDA-Public Use
  Company Number: 163-21880-12082767

PATIENT
  Age: 68 Year
  Sex: Female
  Weight: 79.83 kg

DRUGS (9)
  1. REVLIMID [Suspect]
     Indication: PLASMA CELL MYELOMA
     Dosage: 10 MG, 21 IN 28 D, PO
     Route: 048
     Dates: start: 20120701
  2. AMLODIPINE (AMLODIPINE) [Concomitant]
  3. APAP/CODEINE (GALENIC / PARACETAMOL/CODEINE/) [Concomitant]
  4. FUROSEMIDE (FUROSEMIDE) [Concomitant]
  5. IRON (IRON) [Concomitant]
  6. LOW DOSE ASPIRIN (ACETYLSALICYLIC ACID) [Concomitant]
  7. OXYCODONE (OXYCODONE) [Concomitant]
  8. RENVELA (SEVELAMER CARBONATE) [Concomitant]
  9. NIASPAN (NICOTINIC ACID) [Concomitant]

REACTIONS (2)
  - Contusion [None]
  - Muscle spasms [None]
